FAERS Safety Report 6710707-9 (Version None)
Quarter: 2010Q2

REPORT INFORMATION
  Report Type: 
  Country: None (occurrence: None)
  Receive Date: 20100504
  Receipt Date: 20100504
  Transmission Date: 20101027
  Serious: No
  Sender: FDA-Public Use
  Company Number: None

PATIENT
  Age: 7 Year
  Sex: Female
  Weight: 18.5975 kg

DRUGS (2)
  1. CHILDREN'S TYLENOL ORAL SUSPEN 80MG PER 1/2 TSP MCNEIL-PPC [Suspect]
     Indication: PYREXIA
     Dosage: 1 1/2 TSP PO
     Route: 048
     Dates: start: 20100301, end: 20100301
  2. CHILDREN'S TYLENOL ORAL SUSPEN 80MG PER 1/2 TSP MCNEIL-PPC [Suspect]
     Indication: UPPER RESPIRATORY TRACT INFECTION
     Dosage: 1 1/2 TSP PO
     Route: 048
     Dates: start: 20100301, end: 20100301

REACTIONS (3)
  - ERYTHEMA [None]
  - PRODUCT QUALITY ISSUE [None]
  - PRURITUS [None]
